FAERS Safety Report 19043388 (Version 1)
Quarter: 2021Q1

REPORT INFORMATION
  Report Type: Spontaneous
  Country: US (occurrence: US)
  Receive Date: 20210322
  Receipt Date: 20210322
  Transmission Date: 20210420
  Serious: Yes (Other)
  Sender: FDA-Public Use
  Company Number: None

PATIENT
  Age: 74 Year
  Sex: Female

DRUGS (2)
  1. LIDOCAINE APPLICATOR [DEVICE] [Suspect]
     Active Substance: DEVICE
  2. LIDOCAINE. [Suspect]
     Active Substance: LIDOCAINE
     Route: 061

REACTIONS (2)
  - Device failure [None]
  - Pharyngeal injury [None]

NARRATIVE: CASE EVENT DATE: 20210110
